FAERS Safety Report 10631449 (Version 1)
Quarter: 2014Q4

REPORT INFORMATION
  Report Type: Spontaneous
  Country: US (occurrence: US)
  Receive Date: 20141205
  Receipt Date: 20141205
  Transmission Date: 20150529
  Serious: No
  Sender: FDA-Public Use
  Company Number: US-BRISTOL-MYERS SQUIBB COMPANY-21078381

PATIENT
  Age: 59 Year
  Sex: Female
  Weight: 98.41 kg

DRUGS (1)
  1. ORENCIA [Suspect]
     Active Substance: ABATACEPT
     Indication: RHEUMATOID ARTHRITIS
     Dosage: START DT: AUG13 OR SEP13,LAST INF: 02MAY14
     Route: 042

REACTIONS (4)
  - Nausea [Unknown]
  - Blood pressure increased [Unknown]
  - Dizziness [Unknown]
  - Wrong technique in drug usage process [Unknown]
